FAERS Safety Report 6273794-0 (Version None)
Quarter: 2009Q3

REPORT INFORMATION
  Report Type: 
  Country: None (occurrence: None)
  Receive Date: 20090720
  Receipt Date: 20090710
  Transmission Date: 20100115
  Serious: Yes (Hospitalization)
  Sender: FDA-Public Use
  Company Number: B0583264A

PATIENT
  Sex: Male

DRUGS (6)
  1. AUGMENTIN '125' [Suspect]
     Indication: CHOLECYSTITIS
     Dosage: 1G THREE TIMES PER DAY
     Route: 042
     Dates: start: 20090607, end: 20090609
  2. ACETAMINOPHEN [Concomitant]
     Indication: PAIN
     Dosage: 4G PER DAY
     Route: 042
     Dates: start: 20090607
  3. SPASFON [Concomitant]
     Indication: PAIN
     Dosage: 6AMP PER DAY
     Route: 042
     Dates: start: 20090607
  4. NEXIUM [Concomitant]
     Indication: PAIN
     Dosage: 40MG PER DAY
     Route: 042
     Dates: start: 20090607
  5. ACUPAN [Concomitant]
     Dosage: 80MG PER DAY
     Route: 042
     Dates: start: 20090607
  6. IMOVANE [Concomitant]
     Dosage: 3.75MG PER DAY
     Route: 048
     Dates: start: 20090607

REACTIONS (2)
  - DYSURIA [None]
  - PROSTATOMEGALY [None]
